FAERS Safety Report 19118065 (Version 1)
Quarter: 2021Q2

REPORT INFORMATION
  Report Type: Report from Study
  Country: BR (occurrence: BR)
  Receive Date: 20210410
  Receipt Date: 20210410
  Transmission Date: 20210717
  Serious: Yes (Life-Threatening, Hospitalization, Other)
  Sender: FDA-Public Use
  Company Number: NVSC2021BR080369

PATIENT
  Age: 78 Year
  Sex: Male

DRUGS (2)
  1. GALVUS MET [Suspect]
     Active Substance: METFORMIN HYDROCHLORIDE\VILDAGLIPTIN
     Indication: PRODUCT USED FOR UNKNOWN INDICATION
     Dosage: UNK, 50/850
     Route: 065
  2. DIOVAN [Suspect]
     Active Substance: VALSARTAN
     Indication: PRODUCT USED FOR UNKNOWN INDICATION
     Dosage: 320 UNK, BID
     Route: 065

REACTIONS (13)
  - Lung disorder [Unknown]
  - Pneumonia viral [Unknown]
  - Malaise [Unknown]
  - Bradykinesia [Unknown]
  - Head discomfort [Unknown]
  - Atrial fibrillation [Unknown]
  - Ill-defined disorder [Unknown]
  - Cardiac arrest [Unknown]
  - Gait disturbance [Unknown]
  - Cardiac disorder [Unknown]
  - COVID-19 [Unknown]
  - Stress [Unknown]
  - Illness [Unknown]

NARRATIVE: CASE EVENT DATE: 202011
